FAERS Safety Report 5480244-0 (Version None)
Quarter: 2007Q4

REPORT INFORMATION
  Report Type: 
  Country: None (occurrence: None)
  Receive Date: 20071009
  Receipt Date: 20071004
  Transmission Date: 20080405
  Serious: Yes (Life-Threatening, Hospitalization)
  Sender: FDA-Public Use
  Company Number: PHEH2007US13210

PATIENT
  Age: 81 Year
  Sex: Male

DRUGS (1)
  1. RECLAST [Suspect]
     Indication: OSTEITIS DEFORMANS
     Dosage: 5 MG
     Route: 042
     Dates: start: 20071001

REACTIONS (6)
  - CHILLS [None]
  - DIZZINESS [None]
  - DYSPNOEA [None]
  - HYPOCALCAEMIA [None]
  - MYALGIA [None]
  - MYOCARDIAL INFARCTION [None]
